FAERS Safety Report 25126556 (Version 2)
Quarter: 2025Q2

REPORT INFORMATION
  Report Type: Spontaneous
  Country: IT (occurrence: IT)
  Receive Date: 20250327
  Receipt Date: 20250402
  Transmission Date: 20250716
  Serious: Yes (Hospitalization, Other)
  Sender: GLAXOSMITHKLINE
  Company Number: IT-GSK-IT2025GSK035016

PATIENT

DRUGS (1)
  1. LAMOTRIGINE [Suspect]
     Active Substance: LAMOTRIGINE
     Indication: Product used for unknown indication

REACTIONS (1)
  - Toxic epidermal necrolysis [Recovering/Resolving]
